FAERS Safety Report 14701726 (Version 1)
Quarter: 2018Q1

REPORT INFORMATION
  Report Type: Spontaneous
  Country: DK (occurrence: DK)
  Receive Date: 20180331
  Receipt Date: 20180331
  Transmission Date: 20180509
  Serious: Yes (Other)
  Sender: FDA-Public Use
  Company Number: DK-009507513-1707DNK001233

PATIENT
  Age: 80 Year
  Sex: Female

DRUGS (2)
  1. FOSAMAX [Suspect]
     Active Substance: ALENDRONATE SODIUM
     Indication: OSTEOPOROSIS
     Dosage: DOSE: DOSE UNKNOWN. STRENGTH: STRENGTH UNKNOWN.
     Route: 048
     Dates: start: 1998, end: 2008
  2. ACLASTA [Suspect]
     Active Substance: ZOLEDRONIC ACID
     Indication: OSTEOPOROSIS
     Dosage: DOSE: DOSE UNKNOWN. STRENGTH: STRENGTH UNKNOWN.
     Route: 042
     Dates: start: 20110506, end: 20130507

REACTIONS (7)
  - Tooth extraction [Unknown]
  - Pain in jaw [Unknown]
  - Osteonecrosis of jaw [Recovered/Resolved]
  - Osteomyelitis [Unknown]
  - Gingivitis [Unknown]
  - Sequestrectomy [Recovered/Resolved]
  - Mastication disorder [Unknown]

NARRATIVE: CASE EVENT DATE: 2015
